FAERS Safety Report 9926384 (Version 1)
Quarter: 2014Q1

REPORT INFORMATION
  Report Type: Spontaneous
  Country: CA (occurrence: CA)
  Receive Date: 20140226
  Receipt Date: 20140226
  Transmission Date: 20141002
  Serious: Yes (Other)
  Sender: FDA-Public Use
  Company Number: CA-ASTRAZENECA-2014SE11932

PATIENT
  Age: 4 Year
  Sex: Female

DRUGS (1)
  1. SEROQUEL XR [Suspect]
     Indication: SCHIZOPHRENIA
     Route: 064

REACTIONS (6)
  - Learning disability [Unknown]
  - Hearing impaired [Unknown]
  - Elevated mood [Unknown]
  - Eating disorder [Unknown]
  - Attention deficit/hyperactivity disorder [Unknown]
  - Epilepsy [Unknown]
